FAERS Safety Report 7326507-5 (Version None)
Quarter: 2011Q1

REPORT INFORMATION
  Report Type: 
  Country: None (occurrence: None)
  Receive Date: 20110302
  Receipt Date: 20110222
  Transmission Date: 20110831
  Serious: Yes (Hospitalization)
  Sender: FDA-Public Use
  Company Number: IE-MEDIMMUNE-MEDI-0012740

PATIENT
  Sex: Male

DRUGS (4)
  1. FERROUS SULFATE TAB [Concomitant]
  2. MULTIVITAMIN [Concomitant]
  3. SYNAGIS [Suspect]
     Route: 030
     Dates: start: 20110126
  4. SYNAGIS [Suspect]

REACTIONS (3)
  - RESPIRATORY SYNCYTIAL VIRUS TEST POSITIVE [None]
  - EAR DISORDER [None]
  - PHARYNGEAL DISORDER [None]
